FAERS Safety Report 16327574 (Version 1)
Quarter: 2019Q2

REPORT INFORMATION
  Report Type: Spontaneous
  Country: US (occurrence: US)
  Receive Date: 20190412
  Receipt Date: 20190412
  Transmission Date: 20190711
  Serious: No
  Sender: FDA-Public Use
  Company Number: None

PATIENT
  Age: 47 Year
  Sex: Female

DRUGS (2)
  1. TASIGNA [Suspect]
     Active Substance: NILOTINIB
     Route: 048
     Dates: start: 201809
  2. SPRYCEL [Suspect]
     Active Substance: DASATINIB

REACTIONS (1)
  - Electrocardiogram QT prolonged [None]

NARRATIVE: CASE EVENT DATE: 20181017
